FAERS Safety Report 6807870-8 (Version None)
Quarter: 2010Q2

REPORT INFORMATION
  Report Type: 
  Country: None (occurrence: None)
  Receive Date: 20100629
  Receipt Date: 20090130
  Transmission Date: 20101027
  Serious: No
  Sender: FDA-Public Use
  Company Number: US-PFIZER INC-2008101445

PATIENT
  Sex: Female

DRUGS (8)
  1. XANAX [Suspect]
     Dosage: 0.25 MG, 1X/DAY
  2. PROZAC [Concomitant]
  3. ZANTAC [Concomitant]
  4. ACCUPRIL [Concomitant]
  5. ZOCOR [Concomitant]
  6. NASONEX [Concomitant]
  7. ALISKIREN/HYDROCHLOROTHIAZIDE [Concomitant]
  8. XYZAL [Concomitant]

REACTIONS (1)
  - DRUG INEFFECTIVE [None]
